FAERS Safety Report 4368940-X (Version None)
Quarter: 2004Q2

REPORT INFORMATION
  Report Type: 
  Country: None (occurrence: None)
  Receive Date: 20040527
  Receipt Date: 20040512
  Transmission Date: 20050107
  Serious: Yes (Life-Threatening, Hospitalization, Other)
  Sender: FDA-Public Use
  Company Number: USA040567318

PATIENT
  Age: 57 Year
  Sex: Male
  Weight: 97 kg

DRUGS (2)
  1. HUMALOG [Suspect]
     Dates: start: 20000101
  2. LANTUS [Concomitant]

REACTIONS (1)
  - CARDIAC DISORDER [None]
